FAERS Safety Report 11664455 (Version 1)
Quarter: 2015Q4

REPORT INFORMATION
  Report Type: Report from Study
  Country: US (occurrence: US)
  Receive Date: 20151027
  Receipt Date: 20151027
  Transmission Date: 20160304
  Serious: No
  Sender: FDA-Public Use
  Company Number: PHEH2015US008756

PATIENT
  Sex: Male

DRUGS (3)
  1. EXJADE [Suspect]
     Active Substance: DEFERASIROX
     Indication: MINERAL METABOLISM DISORDER
     Dosage: 1500 MG, UNK
     Route: 065
  2. EXJADE [Suspect]
     Active Substance: DEFERASIROX
     Indication: IRON OVERLOAD
     Dosage: UNK
     Route: 065
  3. EXJADE [Suspect]
     Active Substance: DEFERASIROX
     Dosage: 500 MG, UNK
     Route: 065

REACTIONS (10)
  - Hepatic enzyme increased [Unknown]
  - Arthralgia [Unknown]
  - Blood homocysteine increased [Unknown]
  - Back pain [Unknown]
  - Tremor [Unknown]
  - Musculoskeletal stiffness [Unknown]
  - Drug intolerance [Unknown]
  - Neck pain [Unknown]
  - Inflammation [Not Recovered/Not Resolved]
  - Nasal congestion [Unknown]
